FAERS Safety Report 6976062-4 (Version None)
Quarter: 2010Q3

REPORT INFORMATION
  Report Type: 
  Country: None (occurrence: None)
  Receive Date: 20100910
  Receipt Date: 20090512
  Transmission Date: 20110219
  Serious: No
  Sender: FDA-Public Use
  Company Number: US-WYE-H08879209

PATIENT
  Sex: Male
  Weight: 76.27 kg

DRUGS (6)
  1. PRISTIQ [Suspect]
     Indication: DEPRESSION
     Route: 048
     Dates: start: 20090401
  2. VICODIN [Concomitant]
  3. NEXIUM [Concomitant]
  4. FENTANYL CITRATE [Concomitant]
  5. ENBREL [Concomitant]
  6. METHOTREXATE [Concomitant]

REACTIONS (3)
  - ANXIETY [None]
  - CONFUSIONAL STATE [None]
  - FATIGUE [None]
